FAERS Safety Report 8993428 (Version 2)
Quarter: 2013Q2

REPORT INFORMATION
  Report Type: Spontaneous
  Country: US (occurrence: US)
  Receive Date: 20130102
  Receipt Date: 20130517
  Transmission Date: 20140414
  Serious: Yes (Hospitalization, Other)
  Sender: FDA-Public Use
  Company Number: US-PFIZER INC-2012051390

PATIENT
  Age: 52 Year
  Sex: Female

DRUGS (12)
  1. CHANTIX [Suspect]
     Dosage: STARTING MONTH PACK
     Dates: start: 20070607
  2. CHANTIX [Suspect]
     Dosage: CONTINUING MONTH PACK
     Dates: start: 20070717
  3. CHANTIX [Suspect]
     Dosage: STARTING MONTH PACK
     Dates: start: 20071130, end: 20071230
  4. ALTACE [Concomitant]
     Dosage: 10 MG, UNK
  5. ZOMIG [Concomitant]
     Dosage: 5 MG, UNK
  6. TEMAZEPAM [Concomitant]
     Dosage: 30 MG, UNK
     Dates: start: 20071130
  7. VICODIN [Concomitant]
     Dosage: UNK
  8. XANAX [Concomitant]
     Dosage: UNK
  9. TOPROL XL [Concomitant]
     Dosage: 100 MG, DAILY
  10. RESTORIL [Concomitant]
     Dosage: UNK
  11. PROZAC [Concomitant]
     Dosage: UNK
  12. NEXIUM [Concomitant]
     Dosage: 40 MG, DAILY

REACTIONS (2)
  - Intentional overdose [Unknown]
  - Suicide attempt [Unknown]
